FAERS Safety Report 7944068-4 (Version None)
Quarter: 2011Q4

REPORT INFORMATION
  Report Type: 
  Country: None (occurrence: None)
  Receive Date: 20111128
  Receipt Date: 20111115
  Transmission Date: 20120403
  Serious: Yes (Hospitalization, Other)
  Sender: FDA-Public Use
  Company Number: AU-ASTRAZENECA-2011SE69154

PATIENT

DRUGS (1)
  1. BUPIVACAINE HCL [Suspect]
     Indication: PAIN MANAGEMENT
     Route: 065

REACTIONS (1)
  - ANAPHYLACTIC REACTION [None]
